FAERS Safety Report 5870088-X (Version None)
Quarter: 2008Q3

REPORT INFORMATION
  Report Type: 
  Country: None (occurrence: None)
  Receive Date: 20080904
  Receipt Date: 20080730
  Transmission Date: 20090109
  Serious: Yes (Hospitalization, Other)
  Sender: FDA-Public Use
  Company Number: US-PFIZER INC-2008038973

PATIENT
  Sex: Female

DRUGS (18)
  1. SOLU-MEDROL [Suspect]
  2. BETASERON [Suspect]
     Indication: SECONDARY PROGRESSIVE MULTIPLE SCLEROSIS
     Route: 058
     Dates: start: 20070720, end: 20080701
  3. BETASERON [Suspect]
     Dosage: TEXT:4 MIU
     Route: 058
  4. BETASERON [Suspect]
     Dosage: TEXT:8 MIU
     Route: 058
  5. BETASERON [Suspect]
     Dosage: TEXT:8 MIU
     Route: 058
  6. IBUPROFEN [Suspect]
  7. TYLENOL (CAPLET) [Concomitant]
     Indication: PREMEDICATION
  8. ANTIHYPERTENSIVES [Concomitant]
  9. MAGNESIUM SULFATE [Concomitant]
  10. BACLOFEN [Concomitant]
  11. PREDNISONE TAB [Concomitant]
  12. AMANTADINE HCL [Concomitant]
  13. ACETYLSALICYLIC ACID SRT [Concomitant]
  14. ULTRAM [Concomitant]
  15. XANAX [Concomitant]
  16. AMITIZA [Concomitant]
  17. ACIPHEX [Concomitant]
  18. POTASSIUM CHLORIDE [Concomitant]
     Dosage: TEXT:6DF
     Dates: start: 20070501

REACTIONS (9)
  - BLOOD POTASSIUM DECREASED [None]
  - DEHYDRATION [None]
  - DUODENAL ULCER [None]
  - DYSARTHRIA [None]
  - MULTIPLE SCLEROSIS [None]
  - PNEUMONIA [None]
  - THYROID NEOPLASM [None]
  - VOMITING [None]
  - WEIGHT DECREASED [None]
